FAERS Safety Report 15881889 (Version 1)
Quarter: 2019Q1

REPORT INFORMATION
  Report Type: Spontaneous
  Country: US (occurrence: US)
  Receive Date: 20190128
  Receipt Date: 20190128
  Transmission Date: 20190417
  Serious: No
  Sender: FDA-Public Use
  Company Number: US-SA-2019SA023084

PATIENT
  Age: 88 Year
  Sex: Female

DRUGS (17)
  1. PROPRANOLOL HYDROCHLORIDE. [Suspect]
     Active Substance: PROPRANOLOL HYDROCHLORIDE
     Dosage: UNK UNK, UNK
     Route: 065
  2. SECTRAL [Suspect]
     Active Substance: ACEBUTOLOL HYDROCHLORIDE
     Dosage: UNK UNK, UNK
     Route: 065
  3. LOSARTAN POTASSIUM. [Suspect]
     Active Substance: LOSARTAN POTASSIUM
     Dosage: UNK UNK, UNK
     Route: 065
  4. VASOTEC [ENALAPRILAT] [Suspect]
     Active Substance: ENALAPRILAT
     Dosage: UNK UNK, UNK
     Route: 065
  5. CARDIZEM [Suspect]
     Active Substance: DILTIAZEM HYDROCHLORIDE
     Dosage: UNK UNK, UNK
     Route: 065
  6. VERAPAMIL HYDROCHLORIDE. [Suspect]
     Active Substance: VERAPAMIL HYDROCHLORIDE
     Dosage: UNK UNK, UNK
     Route: 065
  7. TRANDATE [Suspect]
     Active Substance: LABETALOL HYDROCHLORIDE
     Dosage: UNK UNK, UNK
     Route: 065
  8. AVAPRO [Suspect]
     Active Substance: IRBESARTAN
     Dosage: UNK UNK, UNK
     Route: 065
  9. CEFALEXIN [Suspect]
     Active Substance: CEPHALEXIN
     Dosage: UNK UNK, UNK
     Route: 065
  10. PRASUGREL HYDROCHLORIDE [Suspect]
     Active Substance: PRASUGREL HYDROCHLORIDE
     Dosage: UNK UNK, UNK
     Route: 065
  11. FELODIPINE. [Suspect]
     Active Substance: FELODIPINE
     Dosage: UNK UNK, UNK
     Route: 065
  12. CLONIDINE. [Suspect]
     Active Substance: CLONIDINE
     Dosage: UNK UNK, UNK
     Route: 065
  13. TERAZOSIN HYDROCHLORIDE. [Suspect]
     Active Substance: TERAZOSIN HYDROCHLORIDE
     Dosage: UNK UNK, UNK
     Route: 065
  14. ALTACE [Suspect]
     Active Substance: RAMIPRIL
     Dosage: UNK UNK, UNK
     Route: 065
  15. DOXAZOSIN MESILATE [Suspect]
     Active Substance: DOXAZOSIN MESYLATE
     Dosage: UNK UNK, UNK
     Route: 065
  16. METOPROLOL SUCCINATE. [Suspect]
     Active Substance: METOPROLOL SUCCINATE
     Dosage: UNK UNK, UNK
     Route: 065
  17. TRINALIN [Suspect]
     Active Substance: AZATADINE MALEATE\PSEUDOEPHEDRINE SULFATE
     Dosage: UNK UNK, UNK
     Route: 065

REACTIONS (3)
  - Drug hypersensitivity [Unknown]
  - Visual impairment [None]
  - Swelling [None]
